FAERS Safety Report 18757047 (Version 1)
Quarter: 2021Q1

REPORT INFORMATION
  Report Type: Spontaneous
  Country: US (occurrence: US)
  Receive Date: 20210119
  Receipt Date: 20210119
  Transmission Date: 20210419
  Serious: Yes (Other)
  Sender: FDA-Public Use
  Company Number: US-ASTRAZENECA-2021A006047

PATIENT
  Age: 24411 Day
  Sex: Female
  Weight: 77.1 kg

DRUGS (1)
  1. FASENRA [Suspect]
     Active Substance: BENRALIZUMAB
     Indication: ASTHMA
     Dosage: 30G/ML EVERY EIGHT WEEKS
     Route: 058
     Dates: start: 20190315, end: 20210111

REACTIONS (1)
  - Peripheral nerve lesion [Unknown]

NARRATIVE: CASE EVENT DATE: 20210111
